FAERS Safety Report 25748356 (Version 1)
Quarter: 2025Q3

REPORT INFORMATION
  Report Type: Report from Study
  Country: CA (occurrence: CA)
  Receive Date: 20250902
  Receipt Date: 20250902
  Transmission Date: 20251021
  Serious: Yes (Other)
  Sender: Haleon PLC
  Company Number: CA-002147023-NVSC2024CA178010

PATIENT
  Age: 61 Year
  Sex: Female

DRUGS (4)
  1. DICLOFENAC SODIUM [Suspect]
     Active Substance: DICLOFENAC SODIUM
     Indication: Product used for unknown indication
     Route: 065
  2. DICLOFENAC SODIUM [Suspect]
     Active Substance: DICLOFENAC SODIUM
     Route: 065
  3. HUMIRA [Concomitant]
     Active Substance: ADALIMUMAB
     Indication: Product used for unknown indication
     Route: 065
  4. METHOTREXATE [Suspect]
     Active Substance: METHOTREXATE
     Indication: Product used for unknown indication
     Route: 065

REACTIONS (31)
  - Psoriatic arthropathy [Unknown]
  - Hydronephrosis [Unknown]
  - Pain in extremity [Unknown]
  - Nausea [Unknown]
  - Enthesopathy [Unknown]
  - Cholelithiasis [Unknown]
  - Joint swelling [Unknown]
  - Tendonitis [Unknown]
  - COVID-19 [Unknown]
  - Vertigo positional [Unknown]
  - Osteoarthritis [Unknown]
  - Tenderness [Unknown]
  - Cystitis [Unknown]
  - Atelectasis [Unknown]
  - Hypertension [Unknown]
  - C-reactive protein increased [Unknown]
  - Peripheral swelling [Unknown]
  - Insomnia [Unknown]
  - Haematuria [Unknown]
  - Psoriasis [Not Recovered/Not Resolved]
  - Urinary tract obstruction [Unknown]
  - Hiatus hernia [Unknown]
  - Musculoskeletal stiffness [Recovered/Resolved]
  - Nephrolithiasis [Unknown]
  - Hydroureter [Unknown]
  - Fatigue [Unknown]
  - Nodule [Recovered/Resolved]
  - Gait disturbance [Unknown]
  - Upper respiratory tract infection [Unknown]
  - Skin lesion [Recovering/Resolving]
  - Arthralgia [Unknown]
